FAERS Safety Report 10711022 (Version 1)
Quarter: 2015Q1

REPORT INFORMATION
  Report Type: Report from Study
  Country: US (occurrence: US)
  Receive Date: 20150114
  Receipt Date: 20150114
  Transmission Date: 20150721
  Serious: Yes (Death)
  Sender: FDA-Public Use
  Company Number: US-BRISTOL-MYERS SQUIBB COMPANY-BMS-2015-000034

PATIENT
  Age: 60 Year
  Sex: Male
  Weight: 86 kg

DRUGS (2)
  1. IXABEPILONE [Suspect]
     Active Substance: IXABEPILONE
     Indication: NEOPLASM
     Dosage: 32 MG/M2, UNK
     Route: 042
     Dates: start: 20140721
  2. TEMSIROLIMUS [Suspect]
     Active Substance: TEMSIROLIMUS
     Indication: NEOPLASM
     Dosage: 15 MG, UNK
     Route: 042
     Dates: start: 20140721

REACTIONS (1)
  - Pulmonary haemorrhage [Fatal]

NARRATIVE: CASE EVENT DATE: 20140728
